FAERS Safety Report 13369475 (Version 1)
Quarter: 2017Q1

REPORT INFORMATION
  Report Type: Spontaneous
  Country: US (occurrence: US)
  Receive Date: 20170324
  Receipt Date: 20170324
  Transmission Date: 20170429
  Serious: No
  Sender: FDA-Public Use
  Company Number: None

PATIENT
  Age: 49 Year
  Sex: Female

DRUGS (1)
  1. XELJANZ [Suspect]
     Active Substance: TOFACITINIB CITRATE
     Indication: RHEUMATOID ARTHRITIS
     Dosage: 5MG TAKE 1 TAB ORALLY TWO TIMES DAILY PO
     Route: 048
     Dates: start: 20160928, end: 20170221

REACTIONS (3)
  - Respiratory disorder [None]
  - Blood cholesterol abnormal [None]
  - Hepatic steatosis [None]

NARRATIVE: CASE EVENT DATE: 20170221
